FAERS Safety Report 10437050 (Version 1)
Quarter: 2014Q3

REPORT INFORMATION
  Report Type: Spontaneous
  Country: US (occurrence: US)
  Receive Date: 20140908
  Receipt Date: 20140908
  Transmission Date: 20150326
  Serious: No
  Sender: FDA-Public Use
  Company Number: US-BRISTOL-MYERS SQUIBB COMPANY-19594399

PATIENT
  Sex: Female

DRUGS (1)
  1. ABILIFY [Suspect]
     Active Substance: ARIPIPRAZOLE

REACTIONS (10)
  - Asthma [Unknown]
  - Rash [Unknown]
  - Myalgia [Unknown]
  - Vision blurred [Unknown]
  - Blood cholesterol increased [Unknown]
  - Altered state of consciousness [Unknown]
  - Dizziness [Unknown]
  - Pharyngeal oedema [Unknown]
  - Dysphagia [Unknown]
  - Dyspnoea [Unknown]
